FAERS Safety Report 4834953-4 (Version None)
Quarter: 2005Q4

REPORT INFORMATION
  Report Type: 
  Country: None (occurrence: None)
  Receive Date: 20051114
  Receipt Date: 20051102
  Transmission Date: 20060501
  Serious: Yes (Other)
  Sender: FDA-Public Use
  Company Number: 2005150791

PATIENT
  Age: 69 Year
  Sex: Female
  Weight: 62.5964 kg

DRUGS (2)
  1. LIPITOR [Suspect]
     Indication: BLOOD CHOLESTEROL INCREASED
     Dosage: 10 MG (10 MG, 1 IN 1 D),
     Dates: start: 20020901, end: 20020101
  2. ACCUPRIL [Suspect]
     Indication: HYPERTENSION
     Dosage: 25 MG (2 IN 1 D),

REACTIONS (6)
  - ANXIETY [None]
  - BLOOD CHOLESTEROL INCREASED [None]
  - CATARACT OPERATION [None]
  - DYSPNOEA [None]
  - EYE DISORDER [None]
  - EYE HAEMORRHAGE [None]
